FAERS Safety Report 7275483-2 (Version None)
Quarter: 2011Q1

REPORT INFORMATION
  Report Type: 
  Country: None (occurrence: None)
  Receive Date: 20110202
  Receipt Date: 20110202
  Transmission Date: 20110831
  Serious: Yes (Other)
  Sender: FDA-Public Use
  Company Number: None

PATIENT
  Age: 67 Year
  Sex: Male
  Weight: 107.7293 kg

DRUGS (2)
  1. CEFTRIAXONE [Suspect]
     Indication: DEHYDRATION
     Dosage: GM 1 DAILY IV DRIP
     Route: 041
     Dates: start: 20101226, end: 20110101
  2. CEFTRIAXONE [Suspect]
     Indication: PNEUMONIA
     Dosage: GM 1 DAILY IV DRIP
     Route: 041
     Dates: start: 20101226, end: 20110101

REACTIONS (6)
  - CHEILITIS [None]
  - SCAB [None]
  - URTICARIA [None]
  - SCRATCH [None]
  - TONGUE ULCERATION [None]
  - PRURITUS [None]
